FAERS Safety Report 12100428 (Version 1)
Quarter: 2016Q1

REPORT INFORMATION
  Report Type: Spontaneous
  Country: US (occurrence: None)
  Receive Date: 20160219
  Receipt Date: 20160219
  Transmission Date: 20160526
  Serious: Yes (Hospitalization)
  Sender: FDA-Public Use
  Company Number: None

PATIENT
  Age: 24 Year
  Sex: Male
  Weight: 136.4 kg

DRUGS (6)
  1. RIFAXIMIN [Concomitant]
     Active Substance: RIFAXIMIN
  2. HARVONI [Suspect]
     Active Substance: LEDIPASVIR\SOFOSBUVIR
     Indication: HEPATITIS C
     Dosage: 90 LED / 400 SOF
     Dates: start: 20150424, end: 20150723
  3. NADOLOL. [Concomitant]
     Active Substance: NADOLOL
  4. FLUTICASONE [Concomitant]
     Active Substance: FLUTICASONE\FLUTICASONE PROPIONATE
  5. SPIRONOLACTONE. [Concomitant]
     Active Substance: SPIRONOLACTONE
  6. FUROSEMIDE. [Concomitant]
     Active Substance: FUROSEMIDE

REACTIONS (3)
  - Rash [None]
  - Pseudomonal bacteraemia [None]
  - Cellulitis [None]

NARRATIVE: CASE EVENT DATE: 20150724
